FAERS Safety Report 8502759-0 (Version None)
Quarter: 2012Q3

REPORT INFORMATION
  Report Type: 
  Country: None (occurrence: None)
  Receive Date: 20120711
  Receipt Date: 20120709
  Transmission Date: 20120928
  Serious: Yes (Death)
  Sender: FDA-Public Use
  Company Number: DE-PFIZER INC-2012163965

PATIENT
  Age: 89 Year
  Sex: Male

DRUGS (11)
  1. HALOPERIDOL [Interacting]
  2. BISOPROLOL FUMARATE [Suspect]
  3. ISOSORBIDE DINITRATE [Suspect]
  4. RISPERIDONE [Interacting]
  5. ALFUZOSIN HCL [Interacting]
  6. MELPERONE [Interacting]
  7. ACETYLSALICYLIC ACID SRT [Suspect]
  8. HYDROCHLOROTHIAZIDE [Suspect]
  9. OXAZEPAM [Suspect]
  10. CAPTOPRIL [Suspect]
  11. GALANTAMINE HYDROBROMIDE [Interacting]

REACTIONS (1)
  - DRUG INTERACTION [None]
